FAERS Safety Report 11545472 (Version 2)
Quarter: 2015Q4

REPORT INFORMATION
  Report Type: Spontaneous
  Country: US (occurrence: US)
  Receive Date: 20150924
  Receipt Date: 20151012
  Transmission Date: 20160304
  Serious: No
  Sender: FDA-Public Use
  Company Number: US-GLAXOSMITHKLINE-US2015GSK103167

PATIENT
  Sex: Male

DRUGS (1)
  1. TANZEUM [Suspect]
     Active Substance: ALBIGLUTIDE
     Indication: TYPE 2 DIABETES MELLITUS
     Dosage: 30 MG, WE
     Route: 042
     Dates: start: 201502

REACTIONS (8)
  - Product quality issue [Unknown]
  - Device use error [Unknown]
  - Decreased appetite [Unknown]
  - Accidental exposure to product [Unknown]
  - Abdominal distension [Unknown]
  - Drug dose omission [Unknown]
  - Exposure via direct contact [Unknown]
  - Increased appetite [Unknown]
